FAERS Safety Report 16878613 (Version 2)
Quarter: 2020Q1

REPORT INFORMATION
  Report Type: Spontaneous
  Country: US (occurrence: US)
  Receive Date: 20191002
  Receipt Date: 20200304
  Transmission Date: 20200409
  Serious: Yes (Other)
  Sender: FDA-Public Use
  Company Number: US-SA-2019SA263164

PATIENT
  Age: 62 Year
  Sex: Female

DRUGS (1)
  1. SOLIQUA 100/33 [Suspect]
     Active Substance: INSULIN GLARGINE\LIXISENATIDE
     Indication: TYPE 2 DIABETES MELLITUS
     Dosage: UP TO 50 UNITS
     Route: 065

REACTIONS (3)
  - Drug ineffective [Unknown]
  - Diabetes mellitus inadequate control [Unknown]
  - Product dose omission [Unknown]
